FAERS Safety Report 23463917 (Version 2)
Quarter: 2024Q1

REPORT INFORMATION
  Report Type: Spontaneous
  Country: JP (occurrence: JP)
  Receive Date: 20240201
  Receipt Date: 20240215
  Transmission Date: 20240410
  Serious: Yes (Hospitalization)
  Sender: FDA-Public Use
  Company Number: JP-Merck Healthcare KGaA-2024005198

PATIENT
  Age: 9 Decade
  Sex: Male

DRUGS (2)
  1. METGLUCO [Suspect]
     Active Substance: METFORMIN HYDROCHLORIDE
     Indication: Product used for unknown indication
     Route: 048
  2. IMEGLIMIN HYDROCHLORIDE [Suspect]
     Active Substance: IMEGLIMIN HYDROCHLORIDE
     Indication: Type 2 diabetes mellitus
     Route: 048

REACTIONS (2)
  - Diabetes mellitus management [Unknown]
  - Diarrhoea [Recovered/Resolved]

NARRATIVE: CASE EVENT DATE: 20240122
